FAERS Safety Report 15057163 (Version 1)
Quarter: 2018Q2

REPORT INFORMATION
  Report Type: Spontaneous
  Country: US (occurrence: US)
  Receive Date: 20180604
  Receipt Date: 20180604
  Transmission Date: 20180711
  Serious: No
  Sender: FDA-Public Use
  Company Number: None

PATIENT
  Age: 71 Year
  Sex: Male
  Weight: 64.35 kg

DRUGS (9)
  1. LATANAPROST [Concomitant]
     Active Substance: LATANOPROST
  2. MULTIVITAMIN [Concomitant]
     Active Substance: VITAMINS
  3. GARLIC. [Concomitant]
     Active Substance: GARLIC
  4. VITAMIN D [Concomitant]
     Active Substance: CHOLECALCIFEROL
  5. TURMERIC [Concomitant]
     Active Substance: HERBALS\TURMERIC
  6. GLUCOSAMINE + MSM [Concomitant]
  7. VITAMIN B COMPLEX [Concomitant]
     Active Substance: CYANOCOBALAMIN\DEXPANTHENOL\NIACINAMIDE\PYRIDOXINE HYDROCHLORIDE\RIBOFLAVIN 5^-PHOSPHATE SODIUM\THIAMINE HYDROCHLORIDE\VITAMIN B COMPLEX
  8. CEPHALEXIN, 500 MG CAP ASCE [Suspect]
     Active Substance: CEPHALEXIN
     Indication: INFECTION PROPHYLAXIS
     Dosage: ?          QUANTITY:1 CAPSULE(S);?
     Route: 048
     Dates: start: 20180602, end: 20180604
  9. GINGER ROOT [Concomitant]
     Active Substance: GINGER

REACTIONS (5)
  - Vision blurred [None]
  - Tendon pain [None]
  - Headache [None]
  - Arthralgia [None]
  - Fatigue [None]
